FAERS Safety Report 8441136 (Version 7)
Quarter: 2013Q1

REPORT INFORMATION
  Report Type: Spontaneous
  Country: US (occurrence: US)
  Receive Date: 20120305
  Receipt Date: 20130115
  Transmission Date: 20140127
  Serious: Yes (Hospitalization, Other)
  Sender: FDA-Public Use
  Company Number: US-009507513-1203USA00209

PATIENT
  Sex: 0

DRUGS (10)
  1. FOSAMAX PLUS D [Suspect]
     Indication: OSTEOPOROSIS
     Dosage: 70 MG, QW
     Route: 048
     Dates: start: 2007, end: 200908
  2. FOSAMAX PLUS D [Suspect]
     Indication: OSTEOPENIA
  3. FLINTSTONES MULTIVITAMIN [Concomitant]
     Dosage: UNK
     Dates: start: 200310
  4. VIACTIV SOFT CALCIUM CHEWS [Concomitant]
     Dosage: UNK, QD
     Dates: start: 200310
  5. ACTOS [Concomitant]
     Indication: DIABETES MELLITUS
     Dosage: 45 MG, QD
     Route: 048
     Dates: start: 20050324, end: 2009
  6. NORCO [Concomitant]
     Dosage: 7.5/325 MG QD-BID PRN
     Route: 048
  7. PRAVASTATIN SODIUM [Concomitant]
     Dosage: UNK
  8. FOSAMAX [Suspect]
     Indication: OSTEOPOROSIS
     Dosage: 70 MG, QW
     Route: 048
  9. FOSAMAX [Suspect]
     Indication: OSTEOPENIA
  10. ARMOUR THYROID TABLETS [Concomitant]
     Indication: HYPOTHYROIDISM
     Dosage: 90 MG, QD

REACTIONS (54)
  - Femur fracture [Recovering/Resolving]
  - Open reduction of fracture [Recovering/Resolving]
  - Device failure [Recovering/Resolving]
  - Surgery [Recovering/Resolving]
  - Ankle fracture [Recovered/Resolved]
  - Internal fixation of fracture [Recovered/Resolved]
  - Hysterectomy [Unknown]
  - Female sterilisation [Unknown]
  - Tonsillectomy [Recovered/Resolved]
  - Hand fracture [Unknown]
  - Cellulitis [Unknown]
  - Otitis media [Unknown]
  - Bronchitis [Unknown]
  - Tachycardia [Unknown]
  - Loss of consciousness [Unknown]
  - Vitamin D deficiency [Unknown]
  - Haemophilus infection [Unknown]
  - Hypocalcaemia [Unknown]
  - Fall [Recovered/Resolved]
  - Vitamin D deficiency [Unknown]
  - Blood pressure increased [Unknown]
  - Fracture nonunion [Recovering/Resolving]
  - Fibula fracture [Recovered/Resolved]
  - Alcohol abuse [Recovering/Resolving]
  - Thrombocytopenia [Unknown]
  - Transaminases increased [Unknown]
  - Depression [Unknown]
  - Syncope [Unknown]
  - Left ventricular hypertrophy [Unknown]
  - Aortic valve sclerosis [Unknown]
  - Tricuspid valve incompetence [Unknown]
  - Diastolic dysfunction [Unknown]
  - Granuloma [Unknown]
  - Insomnia [Unknown]
  - Foot deformity [Unknown]
  - Hypoaesthesia [Unknown]
  - Treatment noncompliance [Unknown]
  - Spinal osteoarthritis [Unknown]
  - Intervertebral disc degeneration [Unknown]
  - Osteoarthritis [Unknown]
  - Face injury [Unknown]
  - Anaemia postoperative [Unknown]
  - Anxiety [Unknown]
  - Alcoholism [Unknown]
  - Family stress [Unknown]
  - Rib fracture [Unknown]
  - Influenza B virus test positive [Unknown]
  - Compulsive hoarding [Unknown]
  - Fall [Unknown]
  - Hypotension [Unknown]
  - Asthenia [Unknown]
  - Oedema peripheral [Unknown]
  - Arthralgia [Unknown]
  - Joint swelling [Unknown]
